FAERS Safety Report 10247539 (Version 1)
Quarter: 2014Q2

REPORT INFORMATION
  Report Type: Spontaneous
  Country: FR (occurrence: FR)
  Receive Date: 20140619
  Receipt Date: 20140619
  Transmission Date: 20141212
  Serious: Yes (Hospitalization)
  Sender: FDA-Public Use
  Company Number: FR-TEVA-488393ISR

PATIENT
  Age: 53 Year
  Sex: Male

DRUGS (12)
  1. KETOPROFEN TEVA [Suspect]
     Dosage: 2 DOSAGE FORMS DAILY;
     Route: 061
     Dates: start: 20130517, end: 20130520
  2. ENBREL [Suspect]
     Dosage: .1429 DOSAGE FORMS DAILY; 0.1429 DOSAGE FORM, STARTED SINCE AT LEAST 2010
     Route: 058
     Dates: end: 201305
  3. NOVATREX (METHOTREXATE) [Suspect]
     Indication: RHEUMATOID ARTHRITIS
     Dosage: .4286 DOSAGE FORMS DAILY; 0.4286 DOSAGE FORM, TREATED SINCE AT LEAST 2010
     Route: 048
     Dates: end: 201305
  4. APRANAX 550 MG [Suspect]
     Indication: RHEUMATOID ARTHRITIS
     Dosage: 2 DOSAGE FORMS DAILY; AT LEAST SINCE MAY 2012, REGULAR DISPENSATION BY HIS PHARMACIST
     Route: 048
     Dates: end: 201305
  5. FELDENE DISPERSIBLE 20 MG [Suspect]
     Indication: ARTHRALGIA
     Route: 048
     Dates: start: 20130517, end: 20130520
  6. PROFENID 100 MG [Suspect]
     Dosage: 100 MILLIGRAM DAILY; POWDER FOR INJECTABLE SOLUTION
     Route: 048
     Dates: start: 20130521, end: 20130521
  7. PROFENID 100 MG [Suspect]
     Dosage: 200 MILLIGRAM DAILY;
     Route: 048
     Dates: start: 20130522, end: 20130522
  8. SPECIAFOLDINE [Concomitant]
     Dosage: 1.4286 MILLIGRAM DAILY;
  9. OGASTORO 15 [Concomitant]
  10. TAHOR 20 MG [Concomitant]
  11. LEXOMIL [Concomitant]
  12. VOLTARENE EMULGENE [Concomitant]
     Dosage: PUNCTUAL DISPENSATION

REACTIONS (1)
  - Dermo-hypodermitis [Recovered/Resolved]
